FAERS Safety Report 6075101-5 (Version None)
Quarter: 2009Q1

REPORT INFORMATION
  Report Type: 
  Country: None (occurrence: None)
  Receive Date: 20090210
  Receipt Date: 20090210
  Transmission Date: 20090719
  Serious: No
  Sender: FDA-Public Use
  Company Number: None

PATIENT
  Age: 61 Year
  Sex: Male
  Weight: 91.63 kg

DRUGS (1)
  1. COLESTIPOL HYDROCHLORIDE [Suspect]
     Indication: HYPERLIPIDAEMIA
     Dosage: 2 GM EVERY DAY PO
     Route: 048
     Dates: start: 20080925, end: 20081107

REACTIONS (1)
  - BLOOD TRIGLYCERIDES INCREASED [None]
